FAERS Safety Report 8769150 (Version 1)
Quarter: 2012Q4

REPORT INFORMATION
  Report Type: 
  Country: US (occurrence: US)
  Receive Date: 20120904
  Receipt Date: 20120904
  Transmission Date: 20130627
  Serious: No
  Sender: FDA-Public Use
  Company Number: US-AMGEN-USASP2012050854

PATIENT
  Age: 65 Year
  Sex: Female

DRUGS (4)
  1. ENBREL [Suspect]
     Indication: RHEUMATOID ARTHRITIS
     Dosage: 50 mg, qwk
     Dates: start: 20111208, end: 201206
  2. ENBREL [Suspect]
     Indication: MYALGIA
  3. ENBREL [Suspect]
     Indication: FIBROMYALGIA
  4. ENBREL [Suspect]
     Indication: VENOUS INSUFFICIENCY

REACTIONS (5)
  - Drug ineffective [Not Recovered/Not Resolved]
  - Injection site warmth [Recovered/Resolved]
  - Injection site erythema [Recovered/Resolved]
  - Injection site swelling [Recovered/Resolved]
  - Injection site urticaria [Recovered/Resolved]
